FAERS Safety Report 6554283-2 (Version None)
Quarter: 2010Q1

REPORT INFORMATION
  Report Type: 
  Country: None (occurrence: None)
  Receive Date: 20100125
  Receipt Date: 20100125
  Transmission Date: 20100710
  Serious: Yes (Hospitalization)
  Sender: FDA-Public Use
  Company Number: None

PATIENT
  Sex: Female

DRUGS (4)
  1. DURAPREP [Suspect]
     Indication: SURGERY
     Dosage: ONCE TOP
     Route: 061
  2. DURAPREP [Suspect]
  3. DURAPREP [Concomitant]
  4. DURAPREP REMOVER LOTION [Concomitant]

REACTIONS (8)
  - APPLICATION SITE VESICLES [None]
  - HYPERHIDROSIS [None]
  - NO THERAPEUTIC RESPONSE [None]
  - OEDEMA GENITAL [None]
  - RASH ERYTHEMATOUS [None]
  - RASH MACULAR [None]
  - RASH PRURITIC [None]
  - STEVENS-JOHNSON SYNDROME [None]
